FAERS Safety Report 4713756-5 (Version None)
Quarter: 2005Q3

REPORT INFORMATION
  Report Type: 
  Country: None (occurrence: None)
  Receive Date: 20050712
  Receipt Date: 20050705
  Transmission Date: 20060218
  Serious: Yes (Hospitalization)
  Sender: FDA-Public Use
  Company Number: 200512010BCC

PATIENT
  Age: 87 Year
  Sex: Male
  Weight: 77.1115 kg

DRUGS (9)
  1. REGIMEN BAYER 81MG (ACETYLSALICYLIC ACID) [Suspect]
     Indication: MYOCARDIAL INFARCTION
     Dosage: SEE IMAGE
     Route: 048
     Dates: end: 20041101
  2. REGIMEN BAYER 81MG (ACETYLSALICYLIC ACID) [Suspect]
     Indication: PROPHYLAXIS
     Dosage: SEE IMAGE
     Route: 048
     Dates: end: 20041101
  3. REGIMEN BAYER 81MG (ACETYLSALICYLIC ACID) [Suspect]
     Indication: MYOCARDIAL INFARCTION
     Dosage: SEE IMAGE
     Route: 048
     Dates: start: 20050501
  4. REGIMEN BAYER 81MG (ACETYLSALICYLIC ACID) [Suspect]
     Indication: PROPHYLAXIS
     Dosage: SEE IMAGE
     Route: 048
     Dates: start: 20050501
  5. PLAVIX [Suspect]
     Dates: end: 20041101
  6. ZESTRIL [Concomitant]
  7. TOPROL-XL [Concomitant]
  8. AMARYL [Concomitant]
  9. ZOCOR [Concomitant]

REACTIONS (3)
  - CONTUSION [None]
  - SKIN DISCOLOURATION [None]
  - VASCULAR RUPTURE [None]
